FAERS Safety Report 7574084-6 (Version None)
Quarter: 2011Q2

REPORT INFORMATION
  Report Type: 
  Country: None (occurrence: None)
  Receive Date: 20110621
  Receipt Date: 20110608
  Transmission Date: 20111010
  Serious: Yes (Life-Threatening, Hospitalization, Disabling, Other)
  Sender: FDA-Public Use
  Company Number: 1000021094

PATIENT
  Age: 36 Year
  Sex: Female

DRUGS (3)
  1. CAPTOPRIL AND HYDROCHLOROTHIAZIDE [Suspect]
     Dosage: 1 DF (1 DOSAGE FORMS,1  IN 1 D),ORAL
     Route: 048
     Dates: start: 20090203, end: 20090219
  2. LIPOTOX (LIPOTOX) (TABLETS) [Suspect]
     Dates: start: 20090120, end: 20090125
  3. ESCITALOPRAM [Suspect]
     Dosage: 1 DF (1 DOSAGE FORMS, 1 IN 1 D)
     Dates: start: 20080801, end: 20090305

REACTIONS (2)
  - HEPATITIS TOXIC [None]
  - TOXICITY TO VARIOUS AGENTS [None]
